FAERS Safety Report 10363376 (Version 2)
Quarter: 2014Q3

REPORT INFORMATION
  Report Type: Report from Study
  Country: US (occurrence: US)
  Receive Date: 20140805
  Receipt Date: 20140805
  Transmission Date: 20150326
  Serious: Yes (Other)
  Sender: FDA-Public Use
  Company Number: US-SA-2014SA070258

PATIENT
  Age: 40 Year
  Sex: Female

DRUGS (1)
  1. AUBAGIO [Suspect]
     Active Substance: TERIFLUNOMIDE
     Indication: MULTIPLE SCLEROSIS
     Route: 048
     Dates: start: 20140401

REACTIONS (6)
  - Confusional state [Unknown]
  - Memory impairment [Unknown]
  - Muscular weakness [Unknown]
  - Terminal insomnia [Unknown]
  - Abasia [Unknown]
  - Paraesthesia [Unknown]
